FAERS Safety Report 12346006 (Version 11)
Quarter: 2018Q1

REPORT INFORMATION
  Report Type: Report from Study
  Country: CA (occurrence: CA)
  Receive Date: 20160509
  Receipt Date: 20180112
  Transmission Date: 20180508
  Serious: Yes (Death, Hospitalization, Other)
  Sender: FDA-Public Use
  Company Number: PHHY2016CA062117

PATIENT
  Age: 56 Year
  Sex: Male

DRUGS (4)
  1. TAFINLAR [Suspect]
     Active Substance: DABRAFENIB MESYLATE
     Dosage: 300 MG, QD
     Route: 048
     Dates: start: 20160424
  2. MEKINIST [Suspect]
     Active Substance: TRAMETINIB DIMETHYL SULFOXIDE
     Dosage: 2 MG, QD
     Route: 048
     Dates: start: 20160424
  3. TAFINLAR [Suspect]
     Active Substance: DABRAFENIB MESYLATE
     Indication: METASTATIC MALIGNANT MELANOMA
     Dosage: 300 MG, QD
     Route: 048
     Dates: start: 20160219, end: 20160408
  4. MEKINIST [Suspect]
     Active Substance: TRAMETINIB DIMETHYL SULFOXIDE
     Indication: METASTATIC MALIGNANT MELANOMA
     Dosage: 2 MG, QD
     Route: 048
     Dates: start: 20160219, end: 20160408

REACTIONS (14)
  - Brain neoplasm [Unknown]
  - Metastatic malignant melanoma [Unknown]
  - Skin exfoliation [Unknown]
  - Skin irritation [Unknown]
  - Drug interaction [Unknown]
  - Abdominal discomfort [Recovering/Resolving]
  - Malaise [Unknown]
  - Drug ineffective [Unknown]
  - Metastases to central nervous system [Unknown]
  - Death [Fatal]
  - Malignant neoplasm progression [Unknown]
  - Nausea [Recovering/Resolving]
  - Brain oedema [Unknown]
  - Burning sensation [Unknown]

NARRATIVE: CASE EVENT DATE: 20160331
